FAERS Safety Report 21500209 (Version 1)
Quarter: 2022Q4

REPORT INFORMATION
  Report Type: Spontaneous
  Country: FR (occurrence: FR)
  Receive Date: 20221024
  Receipt Date: 20221024
  Transmission Date: 20230113
  Serious: Yes (Hospitalization)
  Sender: FDA-Public Use
  Company Number: US-SA-SAC20220705001237

PATIENT
  Age: 71 Year
  Sex: Male
  Weight: 78 kg

DRUGS (26)
  1. BEVACIZUMAB [Suspect]
     Active Substance: BEVACIZUMAB
     Indication: Colorectal cancer
     Dosage: UNK
     Route: 065
  2. OXALIPLATIN [Suspect]
     Active Substance: OXALIPLATIN
     Indication: Colorectal cancer
     Dosage: 165 MILLIGRAM
     Route: 040
     Dates: start: 20220614, end: 20220614
  3. ETRUMADENANT [Suspect]
     Active Substance: ETRUMADENANT
     Indication: Colorectal cancer
     Dosage: 150 MILLIGRAM
     Route: 048
     Dates: start: 20220615
  4. FLUOROURACIL [Suspect]
     Active Substance: FLUOROURACIL
     Indication: Colorectal cancer
     Dosage: 800 MILLIGRAM
     Route: 040
     Dates: start: 20220614, end: 20220614
  5. FLUOROURACIL [Suspect]
     Active Substance: FLUOROURACIL
     Dosage: 4650 MILLIGRAM
     Route: 040
     Dates: start: 20220614, end: 20220614
  6. REGORAFENIB [Suspect]
     Active Substance: REGORAFENIB
     Indication: Colorectal cancer
     Dosage: 80 MILLIGRAM, QD
     Route: 048
     Dates: start: 20220207, end: 20220227
  7. REGORAFENIB [Suspect]
     Active Substance: REGORAFENIB
     Dosage: 160 MILLIGRAM, QD
     Route: 048
     Dates: start: 20220221, end: 20220227
  8. REGORAFENIB [Suspect]
     Active Substance: REGORAFENIB
     Dosage: 160 MILLIGRAM, QD
     Route: 048
     Dates: start: 20220307, end: 20220327
  9. REGORAFENIB [Suspect]
     Active Substance: REGORAFENIB
     Dosage: 120 MILLIGRAM, QD
     Route: 048
     Dates: start: 20220214, end: 20220227
  10. REGORAFENIB [Suspect]
     Active Substance: REGORAFENIB
     Dosage: 160 MILLIGRAM, QD
     Route: 048
     Dates: start: 20220404, end: 20220424
  11. REGORAFENIB [Suspect]
     Active Substance: REGORAFENIB
     Dosage: 160 MILLIGRAM, QD
     Route: 048
     Dates: start: 20220502, end: 20220518
  12. ZIMBERELIMAB [Suspect]
     Active Substance: ZIMBERELIMAB
     Indication: Colorectal cancer
     Dosage: 150 MILLIGRAM, SINGLE DOSE
     Route: 040
     Dates: start: 20220614, end: 20220614
  13. PRAZEPAM [Concomitant]
     Active Substance: PRAZEPAM
     Dosage: UNK
  14. SODIUM BICARBONATE [Concomitant]
     Active Substance: SODIUM BICARBONATE
     Dosage: UNK
     Dates: start: 20220207
  15. LANSOPRAZOLE ABBOTT [Concomitant]
     Dosage: UNK
  16. ESCITALOPRAM [Concomitant]
     Active Substance: ESCITALOPRAM OXALATE
     Dosage: UNK
  17. Dexeryl [Concomitant]
     Dosage: UNK
     Dates: start: 20220207
  18. SMECTA [Concomitant]
     Active Substance: MONTMORILLONITE
     Dosage: UNK
     Dates: start: 20220207
  19. FENOFIBRATE [Concomitant]
     Active Substance: FENOFIBRATE
     Dosage: UNK
  20. PRIMPERAN [Concomitant]
     Active Substance: METOCLOPRAMIDE HYDROCHLORIDE
     Dosage: UNK
     Dates: start: 20220702
  21. VALPROATE SODIUM [Concomitant]
     Active Substance: VALPROATE SODIUM
     Dosage: UNK
  22. LEVOMEPROMAZINE [Concomitant]
     Active Substance: LEVOMEPROMAZINE
     Dosage: UNK
  23. RACECADOTRIL [Concomitant]
     Active Substance: RACECADOTRIL
     Dosage: UNK
     Dates: start: 20220207
  24. IMODIUM [Concomitant]
     Active Substance: LOPERAMIDE HYDROCHLORIDE
     Dosage: UNK
     Dates: start: 20220207
  25. INNOHEP [Concomitant]
     Active Substance: TINZAPARIN SODIUM
     Dosage: UNK
     Dates: start: 20201201
  26. POTASSIUM CHLORIDE [Concomitant]
     Active Substance: POTASSIUM CHLORIDE
     Dosage: UNK

REACTIONS (3)
  - Anaemia [Recovered/Resolved]
  - Platelet count decreased [Recovered/Resolved]
  - Neutrophil count decreased [Recovered/Resolved]

NARRATIVE: CASE EVENT DATE: 20220624
